FAERS Safety Report 8626995 (Version 5)
Quarter: 2013Q1

REPORT INFORMATION
  Report Type: Report from Study
  Country: US (occurrence: US)
  Receive Date: 20120620
  Receipt Date: 20130125
  Transmission Date: 20140127
  Serious: Yes (Other)
  Sender: FDA-Public Use
  Company Number: US-ROCHE-1022767

PATIENT
  Age: 21 Year
  Sex: Female
  Weight: 77.18 kg

DRUGS (26)
  1. OMALIZUMAB [Suspect]
     Indication: ASTHMA
     Route: 058
     Dates: start: 20110921
  2. OMALIZUMAB [Suspect]
     Route: 058
     Dates: start: 20111005
  3. OMALIZUMAB [Suspect]
     Route: 058
     Dates: start: 20111019
  4. OMALIZUMAB [Suspect]
     Route: 058
     Dates: start: 20111102
  5. OMALIZUMAB [Suspect]
     Route: 058
     Dates: start: 20111116
  6. OMALIZUMAB [Suspect]
     Route: 058
     Dates: start: 20111130
  7. OMALIZUMAB [Suspect]
     Route: 058
     Dates: start: 20111214
  8. OMALIZUMAB [Suspect]
     Route: 058
     Dates: start: 20120613
  9. OMALIZUMAB [Suspect]
     Route: 058
     Dates: start: 20120627
  10. OMALIZUMAB [Suspect]
     Route: 058
     Dates: start: 20120711
  11. OMALIZUMAB [Suspect]
     Route: 058
     Dates: start: 20120516
  12. OMALIZUMAB [Suspect]
     Route: 058
     Dates: start: 20120808
  13. OMALIZUMAB [Suspect]
     Route: 058
     Dates: start: 20120827
  14. ALLEGRA-D [Concomitant]
     Indication: HYPERSENSITIVITY
  15. ZYRTEC [Concomitant]
     Indication: HYPERSENSITIVITY
  16. SINGULAIR [Concomitant]
     Indication: ASTHMA
  17. ACIPHEX [Concomitant]
     Indication: ASTHMA
  18. FORADIL [Concomitant]
     Indication: ASTHMA
  19. XOPENEX [Concomitant]
     Indication: ASTHMA
     Route: 065
  20. XOPENEX [Concomitant]
     Route: 065
  21. PULMICORT [Concomitant]
     Indication: ASTHMA
  22. BABY ASPIRIN [Concomitant]
     Indication: PROPHYLAXIS
  23. PRENATAL VITAMIN [Concomitant]
     Indication: PREGNANCY
  24. NEXIUM [Concomitant]
  25. TYLENOL [Concomitant]
  26. SYMBICORT [Concomitant]

REACTIONS (6)
  - Breech presentation [Recovered/Resolved]
  - Asthma [Unknown]
  - Exposure during pregnancy [Unknown]
  - Fungal infection [Unknown]
  - Nausea [Unknown]
  - Gastrooesophageal reflux disease [Unknown]
